FAERS Safety Report 7018705-5 (Version None)
Quarter: 2010Q3

REPORT INFORMATION
  Report Type: 
  Country: None (occurrence: None)
  Receive Date: 20100928
  Receipt Date: 20100917
  Transmission Date: 20110219
  Serious: Yes (Other)
  Sender: FDA-Public Use
  Company Number: PT-JNJFOC-20100906236

PATIENT
  Age: 40 Year
  Sex: Female

DRUGS (11)
  1. INFLIXIMAB, RECOMBINANT [Suspect]
     Indication: HIDRADENITIS
     Dosage: WEEK 6
     Route: 042
  2. INFLIXIMAB, RECOMBINANT [Suspect]
     Dosage: WEEK 2
     Route: 042
  3. INFLIXIMAB, RECOMBINANT [Suspect]
     Dosage: WEEK 0
     Route: 042
  4. INFLIXIMAB, RECOMBINANT [Suspect]
     Indication: BEHCET'S SYNDROME
     Dosage: WEEK 2
     Route: 042
  5. INFLIXIMAB, RECOMBINANT [Suspect]
     Dosage: WEEK 6
     Route: 042
  6. INFLIXIMAB, RECOMBINANT [Suspect]
     Dosage: WEEK 0
     Route: 042
  7. ZARATOR [Concomitant]
     Indication: HYPERCHOLESTEROLAEMIA
  8. EZETIMIBE/SIMVASTATIN [Concomitant]
     Indication: HYPERCHOLESTEROLAEMIA
  9. SULFASALAZINE [Concomitant]
     Indication: BEHCET'S SYNDROME
  10. ANTIHYPERTENSIVE [Concomitant]
     Indication: HYPERTENSION
  11. METFORMIN HCL [Concomitant]

REACTIONS (3)
  - BLOOD CHOLESTEROL INCREASED [None]
  - GLYCOSYLATED HAEMOGLOBIN INCREASED [None]
  - WEIGHT INCREASED [None]
